FAERS Safety Report 9119312 (Version 1)
Quarter: 2013Q1

REPORT INFORMATION
  Report Type: Spontaneous
  Country: SE (occurrence: SE)
  Receive Date: 20130226
  Receipt Date: 20130226
  Transmission Date: 20140127
  Serious: Yes (Other)
  Sender: FDA-Public Use
  Company Number: PHHY2013SE017852

PATIENT
  Age: 50 Year
  Sex: Female

DRUGS (1)
  1. ESTRADOT [Suspect]
     Dosage: UNK UKN, UNK
     Route: 062

REACTIONS (3)
  - Memory impairment [Unknown]
  - Arthralgia [Unknown]
  - Vascular pain [Unknown]
